FAERS Safety Report 17844687 (Version 1)
Quarter: 2020Q2

REPORT INFORMATION
  Report Type: Spontaneous
  Country: US (occurrence: US)
  Receive Date: 20200601
  Receipt Date: 20200601
  Transmission Date: 20200714
  Serious: Yes (Other)
  Sender: FDA-Public Use
  Company Number: US-VIIV HEALTHCARE LIMITED-US2020089542

PATIENT
  Age: 52 Year
  Sex: Male

DRUGS (1)
  1. TRIUMEQ [Suspect]
     Active Substance: ABACAVIR SULFATE\DOLUTEGRAVIR SODIUM\LAMIVUDINE
     Indication: HIV INFECTION
     Dosage: UNK
     Route: 065
     Dates: start: 20200523

REACTIONS (4)
  - Dizziness [Unknown]
  - Fatigue [Unknown]
  - Hallucination [Unknown]
  - Impaired work ability [Unknown]

NARRATIVE: CASE EVENT DATE: 20200526
